FAERS Safety Report 18301648 (Version 2)
Quarter: 2022Q1

REPORT INFORMATION
  Report Type: Spontaneous
  Country: US (occurrence: US)
  Receive Date: 20200923
  Receipt Date: 20220111
  Transmission Date: 20220423
  Serious: Yes (Hospitalization, Other)
  Sender: FDA-Public Use
  Company Number: US-GLAXOSMITHKLINE-US2020GSK188776

PATIENT
  Sex: Male

DRUGS (4)
  1. ZANTAC [Suspect]
     Active Substance: RANITIDINE HYDROCHLORIDE
     Indication: Gastrooesophageal reflux disease
     Dosage: UNK
     Route: 065
     Dates: start: 200806, end: 201206
  2. ZANTAC [Suspect]
     Active Substance: RANITIDINE HYDROCHLORIDE
     Indication: Dyspepsia
     Dosage: UNK
     Route: 048
     Dates: start: 2013, end: 2019
  3. ZANTAC [Suspect]
     Active Substance: RANITIDINE HYDROCHLORIDE
     Indication: Gastrooesophageal reflux disease
     Dosage: UNK
     Route: 065
     Dates: start: 2013, end: 2019
  4. ZANTAC [Suspect]
     Active Substance: RANITIDINE HYDROCHLORIDE
     Indication: Dyspepsia

REACTIONS (11)
  - Pancreatic neuroendocrine tumour [Unknown]
  - Lymphoma [Unknown]
  - Pancreatic carcinoma [Unknown]
  - Hodgkin^s disease [Unknown]
  - Non-Hodgkin^s lymphoma [Unknown]
  - Hodgkin^s disease nodular sclerosis [Unknown]
  - Lymphadenopathy [Unknown]
  - Lymphadenitis [Unknown]
  - Pancreatic mass [Unknown]
  - Neuroendocrine tumour [Unknown]
  - Pancreatic disorder [Unknown]
